FAERS Safety Report 5649444-0 (Version None)
Quarter: 2008Q1

REPORT INFORMATION
  Report Type: 
  Country: None (occurrence: None)
  Receive Date: 20080304
  Receipt Date: 20080220
  Transmission Date: 20080703
  Serious: Yes (Hospitalization, Other)
  Sender: FDA-Public Use
  Company Number: DE-BAYER-200710228BVD

PATIENT
  Age: 59 Year
  Sex: Female
  Weight: 106 kg

DRUGS (8)
  1. SORAFENIB [Suspect]
     Indication: NON-SMALL CELL LUNG CANCER
     Route: 048
     Dates: start: 20070127, end: 20070209
  2. CARBOPLATIN [Suspect]
     Indication: NON-SMALL CELL LUNG CANCER
     Route: 042
  3. PACLITAXEL [Suspect]
     Indication: NON-SMALL CELL LUNG CANCER
     Route: 042
     Dates: start: 20070216, end: 20070216
  4. FORTECORTIN [Concomitant]
     Route: 048
     Dates: start: 20070215, end: 20070216
  5. PANTOZOL [Concomitant]
     Route: 048
     Dates: start: 20070215, end: 20070216
  6. EMEND [Concomitant]
     Route: 048
     Dates: start: 20070216, end: 20070216
  7. DELTAJONIN [Concomitant]
     Route: 042
     Dates: start: 20070216, end: 20070216
  8. KEVATRIL [Concomitant]
     Route: 042
     Dates: start: 20070216, end: 20070216

REACTIONS (3)
  - DIPLEGIA [None]
  - HYPERSENSITIVITY [None]
  - HYPERTENSION [None]
